FAERS Safety Report 8090604-X (Version None)
Quarter: 2012Q1

REPORT INFORMATION
  Report Type: 
  Country: None (occurrence: None)
  Receive Date: 20120129
  Receipt Date: 20111120
  Transmission Date: 20120608
  Serious: No
  Sender: FDA-Public Use
  Company Number: US-ABBOTT-11P-163-0876381-00

PATIENT
  Age: 15 Year
  Sex: Male

DRUGS (5)
  1. HUMIRA [Suspect]
     Indication: CROHN'S DISEASE
     Dates: start: 20111006
  2. ABILIFY [Concomitant]
     Indication: ATTENTION DEFICIT/HYPERACTIVITY DISORDER
     Dosage: DAILY
  3. STEROID [Concomitant]
     Indication: HYPERSENSITIVITY
     Dosage: 1-2 TIMES PER WEEK
  4. ZOLOFT [Concomitant]
     Indication: ANXIETY
     Dosage: DAILY
  5. VYVANSE [Concomitant]
     Indication: ATTENTION DEFICIT/HYPERACTIVITY DISORDER
     Dosage: DAILY

REACTIONS (5)
  - OROPHARYNGEAL PAIN [None]
  - COUGH [None]
  - NASOPHARYNGITIS [None]
  - RHINORRHOEA [None]
  - TINNITUS [None]
